FAERS Safety Report 5193614-5 (Version None)
Quarter: 2006Q4

REPORT INFORMATION
  Report Type: 
  Country: None (occurrence: None)
  Receive Date: 20061228
  Receipt Date: 20061017
  Transmission Date: 20070319
  Serious: No
  Sender: FDA-Public Use
  Company Number: US-GLAXOSMITHKLINE-A0624121A

PATIENT
  Sex: Male

DRUGS (3)
  1. FLONASE [Suspect]
     Indication: DRUG USE FOR UNKNOWN INDICATION
     Route: 045
     Dates: start: 19960101, end: 20060201
  2. LIPITOR [Concomitant]
     Indication: DRUG USE FOR UNKNOWN INDICATION
     Dosage: 20MG PER DAY
     Route: 048
     Dates: start: 20020101, end: 20051101
  3. ASPIRIN [Concomitant]
     Dosage: 100MG PER DAY
     Route: 048
     Dates: start: 19990101

REACTIONS (4)
  - CANDIDIASIS [None]
  - EPISTAXIS [None]
  - ERECTILE DYSFUNCTION [None]
  - WEIGHT INCREASED [None]
